FAERS Safety Report 11332343 (Version 1)
Quarter: 2015Q3

REPORT INFORMATION
  Report Type: Spontaneous
  Country: US (occurrence: US)
  Receive Date: 20150803
  Receipt Date: 20150803
  Transmission Date: 20151125
  Serious: No
  Sender: FDA-Public Use
  Company Number: US-ELI_LILLY_AND_COMPANY-US200808005038

PATIENT
  Age: 19 Year
  Sex: Male

DRUGS (1)
  1. ZYPREXA [Suspect]
     Active Substance: OLANZAPINE
     Dosage: 20 MG, UNK
     Dates: end: 200808

REACTIONS (5)
  - Weight increased [Unknown]
  - Depressed mood [Unknown]
  - Anxiety [Unknown]
  - Paranoia [Unknown]
  - Drug abuse [Unknown]
